FAERS Safety Report 15398213 (Version 1)
Quarter: 2018Q3

REPORT INFORMATION
  Report Type: Spontaneous
  Country: FR (occurrence: FR)
  Receive Date: 20180918
  Receipt Date: 20180918
  Transmission Date: 20181010
  Serious: Yes (Other)
  Sender: FDA-Public Use
  Company Number: FR-TEVA-2018-FR-955711

PATIENT
  Age: 33 Year
  Sex: Male

DRUGS (4)
  1. RISPERIDONE. [Suspect]
     Active Substance: RISPERIDONE
     Indication: PRODUCT USED FOR UNKNOWN INDICATION
     Dosage: UNSPECIFIED
     Route: 048
  2. BROMAZEPAM [Suspect]
     Active Substance: BROMAZEPAM
     Indication: PRODUCT USED FOR UNKNOWN INDICATION
     Dosage: UNSPECIFIED
     Route: 048
  3. LOXAPAC [Suspect]
     Active Substance: LOXAPINE
     Indication: PRODUCT USED FOR UNKNOWN INDICATION
     Dosage: UNSPECIFIED
     Route: 048
  4. CANNABIS ET RESINE [Suspect]
     Active Substance: CANNABIS SATIVA SUBSP. INDICA TOP
     Indication: DRUG ABUSE
     Dosage: CANNABIS
     Route: 055

REACTIONS (2)
  - Drug abuse [Recovering/Resolving]
  - Poisoning deliberate [Recovered/Resolved]
